FAERS Safety Report 12157011 (Version 5)
Quarter: 2018Q1

REPORT INFORMATION
  Report Type: Report from Study
  Country: US (occurrence: US)
  Receive Date: 20160307
  Receipt Date: 20180110
  Transmission Date: 20180508
  Serious: Yes (Disabling)
  Sender: FDA-Public Use
  Company Number: US-AMGEN-USACT2016025441

PATIENT
  Age: 22 Year
  Sex: Male

DRUGS (11)
  1. MOTRIN [Concomitant]
     Active Substance: IBUPROFEN
     Indication: PAIN
     Dosage: 1-2TABLETS, Q6H AS NECESSARY
  2. VITAMIN C [Concomitant]
     Active Substance: ASCORBIC ACID
     Dosage: 500 MG, QD
     Route: 048
     Dates: start: 20120719
  3. IBUPROFEN. [Concomitant]
     Active Substance: IBUPROFEN
     Indication: PAIN
     Dosage: 200 MG, Q6H
  4. VITAMIN D [Concomitant]
     Active Substance: CHOLECALCIFEROL
     Indication: STRESS FRACTURE
     Dosage: 400 IU, QD
     Route: 048
     Dates: start: 20150721
  5. PREDNISONE. [Concomitant]
     Active Substance: PREDNISONE
     Indication: PRURITUS
     Dosage: 40 MG, UNK
     Route: 048
     Dates: start: 20151218, end: 20151227
  6. PREDNISONE. [Concomitant]
     Active Substance: PREDNISONE
     Indication: ACARODERMATITIS
  7. RITALIN [Concomitant]
     Active Substance: METHYLPHENIDATE HYDROCHLORIDE
     Dosage: 10 MG, AS NECESSARY
     Route: 048
     Dates: start: 20160105
  8. DENOSUMAB [Suspect]
     Active Substance: DENOSUMAB
     Indication: BONE GIANT CELL TUMOUR
     Dosage: 120 MG/1.7 ML, QMO
     Route: 058
     Dates: start: 20110721, end: 20160128
  9. MEDIPLAST [Concomitant]
     Active Substance: SALICYLIC ACID
     Dosage: 40 %, UNK
     Route: 061
  10. CALCIUM [Concomitant]
     Active Substance: CALCIUM
     Indication: STRESS FRACTURE
     Dosage: 600 MG, QD
     Route: 048
     Dates: start: 20110721
  11. ADVIL [Concomitant]
     Active Substance: IBUPROFEN
     Indication: PAIN
     Dosage: 1-2 TABLETS, Q6H AS NECESSARY

REACTIONS (2)
  - Stress fracture [Recovering/Resolving]
  - Atypical femur fracture [Not Recovered/Not Resolved]

NARRATIVE: CASE EVENT DATE: 20160209
